FAERS Safety Report 5541320-7 (Version None)
Quarter: 2007Q4

REPORT INFORMATION
  Report Type: 
  Country: None (occurrence: None)
  Receive Date: 20071209
  Receipt Date: 20061217
  Transmission Date: 20080405
  Serious: No
  Sender: FDA-Public Use
  Company Number: US-AMGEN-KDL203905

PATIENT
  Sex: Female

DRUGS (1)
  1. ENBREL [Suspect]
     Indication: PSORIASIS
     Route: 058
     Dates: start: 20061202

REACTIONS (6)
  - CYST [None]
  - ERYTHEMA [None]
  - HEADACHE [None]
  - INDURATION [None]
  - PAIN [None]
  - PRURITUS [None]
